FAERS Safety Report 6573586-9 (Version None)
Quarter: 2010Q1

REPORT INFORMATION
  Report Type: 
  Country: None (occurrence: None)
  Receive Date: 20100208
  Receipt Date: 20100122
  Transmission Date: 20100710
  Serious: No
  Sender: FDA-Public Use
  Company Number: US-JNJFOC-20091006146

PATIENT
  Sex: Female
  Weight: 47.63 kg

DRUGS (3)
  1. DURAGESIC-100 [Suspect]
     Indication: BACK PAIN
     Route: 062
     Dates: start: 20091009
  2. DURAGESIC-100 [Suspect]
     Route: 062
     Dates: start: 20091009
  3. OXYCODONE HCL [Concomitant]
     Indication: PAIN
     Route: 048

REACTIONS (9)
  - DRUG INEFFECTIVE [None]
  - HEADACHE [None]
  - HYPERTENSION [None]
  - INAPPROPRIATE SCHEDULE OF DRUG ADMINISTRATION [None]
  - NAUSEA [None]
  - PAIN [None]
  - PRODUCT QUALITY ISSUE [None]
  - PRODUCT SUBSTITUTION ISSUE [None]
  - VOMITING [None]
